FAERS Safety Report 8025824-3 (Version None)
Quarter: 2012Q1

REPORT INFORMATION
  Report Type: 
  Country: None (occurrence: None)
  Receive Date: 20120105
  Receipt Date: 20110318
  Transmission Date: 20120608
  Serious: No
  Sender: FDA-Public Use
  Company Number: US-ABBOTT-11P-163-0713374-00

PATIENT
  Age: 73 Year
  Sex: Female
  Weight: 72.64 kg

DRUGS (4)
  1. SYNTHROID [Suspect]
     Indication: HYPOTHYROIDISM
     Dates: start: 20010101
  2. SYNTHROID [Suspect]
  3. UNKNOWN MEDICATION [Suspect]
     Indication: THYROID DISORDER
  4. INSULIN [Suspect]
     Indication: DIABETES MELLITUS

REACTIONS (5)
  - PAIN IN EXTREMITY [None]
  - JOINT SWELLING [None]
  - OEDEMA PERIPHERAL [None]
  - ARTHRALGIA [None]
  - DRUG HYPERSENSITIVITY [None]
